FAERS Safety Report 25277075 (Version 1)
Quarter: 2025Q2

REPORT INFORMATION
  Report Type: Spontaneous
  Country: ES (occurrence: ES)
  Receive Date: 20250507
  Receipt Date: 20250507
  Transmission Date: 20250717
  Serious: Yes (Hospitalization)
  Sender: BOEHRINGER INGELHEIM
  Company Number: None

PATIENT
  Age: 72 Year
  Sex: Male

DRUGS (4)
  1. OFEV [Suspect]
     Active Substance: NINTEDANIB
     Indication: Interstitial lung disease
     Route: 048
     Dates: start: 20250411, end: 20250426
  2. XAZAL 5 mg COMPRIMIDOS RECUBIERTOS CON PELICULA [Concomitant]
     Indication: Product used for unknown indication
  3. ANORO ELLIPTA 55 MCG/22 MCG POLVO PARA INHALACION (UNIDOSIS) [Concomitant]
     Indication: Product used for unknown indication
  4. ALAPANZOL 40 mg COMPRIMIDOS GASTRORRESISTENTES EFG [Concomitant]
     Indication: Product used for unknown indication

REACTIONS (3)
  - Diarrhoea [Recovering/Resolving]
  - Normocytic anaemia [Recovering/Resolving]
  - Thrombocytopenia [Recovering/Resolving]

NARRATIVE: CASE EVENT DATE: 20250421
